FAERS Safety Report 22255378 (Version 1)
Quarter: 2023Q2

REPORT INFORMATION
  Report Type: Report from Study
  Country: FR (occurrence: FR)
  Receive Date: 20230426
  Receipt Date: 20230426
  Transmission Date: 20230721
  Serious: Yes (Other)
  Sender: FDA-Public Use
  Company Number: FR-MYLANLABS-2023M1044592

PATIENT
  Age: 13 Year
  Sex: Female

DRUGS (18)
  1. METHOTREXATE [Suspect]
     Active Substance: METHOTREXATE
     Indication: Immunosuppressant drug therapy
     Dosage: UNK
     Route: 065
  2. METHOTREXATE [Suspect]
     Active Substance: METHOTREXATE
     Indication: CBL gene mutation
  3. METHOTREXATE [Suspect]
     Active Substance: METHOTREXATE
     Indication: Eye disorder
  4. PREDNISONE [Suspect]
     Active Substance: PREDNISONE
     Indication: Immunosuppressant drug therapy
     Dosage: UNK
     Route: 065
  5. PREDNISONE [Suspect]
     Active Substance: PREDNISONE
     Indication: CBL gene mutation
  6. PREDNISONE [Suspect]
     Active Substance: PREDNISONE
     Indication: Eye disorder
  7. ADALIMUMAB [Suspect]
     Active Substance: ADALIMUMAB
     Indication: Immunosuppressant drug therapy
     Dosage: UNK
     Route: 065
  8. ADALIMUMAB [Suspect]
     Active Substance: ADALIMUMAB
     Indication: CBL gene mutation
  9. ADALIMUMAB [Suspect]
     Active Substance: ADALIMUMAB
     Indication: Eye disorder
  10. TOCILIZUMAB [Suspect]
     Active Substance: TOCILIZUMAB
     Indication: Immunosuppressant drug therapy
     Dosage: UNK
     Route: 065
  11. TOCILIZUMAB [Suspect]
     Active Substance: TOCILIZUMAB
     Indication: CBL gene mutation
  12. TOCILIZUMAB [Suspect]
     Active Substance: TOCILIZUMAB
     Indication: Eye disorder
  13. INTERFERON ALFA-1A [Suspect]
     Active Substance: INTERFERON ALFA-1A
     Indication: Immunosuppressant drug therapy
     Dosage: UNK
     Route: 065
  14. INTERFERON ALFA-1A [Suspect]
     Active Substance: INTERFERON ALFA-1A
     Indication: CBL gene mutation
  15. INTERFERON ALFA-1A [Suspect]
     Active Substance: INTERFERON ALFA-1A
     Indication: Eye disorder
  16. GOLIMUMAB [Suspect]
     Active Substance: GOLIMUMAB
     Indication: Immunosuppressant drug therapy
     Dosage: UNK
     Route: 065
  17. GOLIMUMAB [Suspect]
     Active Substance: GOLIMUMAB
     Indication: CBL gene mutation
  18. GOLIMUMAB [Suspect]
     Active Substance: GOLIMUMAB
     Indication: Eye disorder

REACTIONS (1)
  - Drug ineffective [Unknown]
